FAERS Safety Report 5463192-1 (Version None)
Quarter: 2007Q3

REPORT INFORMATION
  Report Type: 
  Country: None (occurrence: None)
  Receive Date: 20070920
  Receipt Date: 20070914
  Transmission Date: 20080115
  Serious: Yes (Other)
  Sender: FDA-Public Use
  Company Number: A0682798A

PATIENT
  Age: 69 Year
  Sex: Female

DRUGS (2)
  1. ADVAIR DISKUS 100/50 [Suspect]
     Indication: CHRONIC OBSTRUCTIVE PULMONARY DISEASE
     Route: 055
  2. PULMICORT [Concomitant]

REACTIONS (3)
  - LUNG DISORDER [None]
  - OXYGEN SUPPLEMENTATION [None]
  - SARCOIDOSIS [None]
